FAERS Safety Report 8943005 (Version 1)
Quarter: 2012Q4

REPORT INFORMATION
  Report Type: 
  Country: US (occurrence: US)
  Receive Date: 20121204
  Receipt Date: 20121204
  Transmission Date: 20130627
  Serious: Yes (Death)
  Sender: FDA-Public Use
  Company Number: US-PFIZER INC-2012301736

PATIENT
  Age: 87 Year
  Sex: Male

DRUGS (1)
  1. REVATIO [Suspect]
     Indication: PULMONARY HYPERTENSION
     Dosage: 20 mg, 3x/day

REACTIONS (5)
  - Disease progression [Fatal]
  - Pulmonary hypertension [Fatal]
  - Gastrointestinal infection [Fatal]
  - Chronic obstructive pulmonary disease [Fatal]
  - Skin cancer [Fatal]
